FAERS Safety Report 24545469 (Version 4)
Quarter: 2024Q4

REPORT INFORMATION
  Report Type: Report from Study
  Country: PT (occurrence: PT)
  Receive Date: 20241024
  Receipt Date: 20241128
  Transmission Date: 20250115
  Serious: Yes (Death, Life-Threatening, Hospitalization, Disabling)
  Sender: SANDOZ
  Company Number: PT-002147023-NVSC2024PT158741

PATIENT
  Age: 56 Year
  Sex: Female
  Weight: 78 kg

DRUGS (12)
  1. FULVESTRANT [Suspect]
     Active Substance: FULVESTRANT
     Indication: Hormone receptor positive HER2 negative breast cancer
     Dosage: 500 MG, QMO
     Route: 030
     Dates: start: 20240430, end: 20240724
  2. FULVESTRANT [Suspect]
     Active Substance: FULVESTRANT
     Indication: PIK3CA-activated mutation
  3. ATENOLOL [Concomitant]
     Active Substance: ATENOLOL
     Indication: General physical condition
     Dosage: UNK
     Route: 065
     Dates: start: 2022
  4. ATENOLOL [Concomitant]
     Active Substance: ATENOLOL
     Indication: Hypertension
  5. CALCITAB D [Concomitant]
     Indication: General physical condition
     Dosage: UNK
     Route: 065
     Dates: start: 20230822
  6. FENTANYL [Concomitant]
     Active Substance: FENTANYL
     Indication: Back pain
     Dosage: UNK
     Route: 065
     Dates: start: 20240430
  7. FENTANYL [Concomitant]
     Active Substance: FENTANYL
     Indication: Back pain
  8. METOCLOPRAMIDE [Concomitant]
     Active Substance: METOCLOPRAMIDE
     Indication: Nausea
     Dosage: UNK
     Route: 065
     Dates: start: 20240509
  9. OLMESARTAN [Concomitant]
     Active Substance: OLMESARTAN
     Indication: General physical condition
     Dosage: UNK
     Route: 065
     Dates: start: 202212
  10. OLMESARTAN [Concomitant]
     Active Substance: OLMESARTAN
     Indication: Hypertension
  11. OMEPRAZOLE [Concomitant]
     Active Substance: OMEPRAZOLE
     Indication: General physical condition
     Dosage: UNK
     Route: 065
     Dates: start: 2023
  12. ZOLEDRONIC ACID [Concomitant]
     Active Substance: ZOLEDRONIC ACID
     Indication: Skeletal injury
     Dosage: UNK
     Route: 065
     Dates: start: 2023

REACTIONS (1)
  - Pulmonary embolism [Fatal]

NARRATIVE: CASE EVENT DATE: 20240802
